FAERS Safety Report 19147766 (Version 2)
Quarter: 2021Q2

REPORT INFORMATION
  Report Type: Spontaneous
  Country: US (occurrence: US)
  Receive Date: 20210416
  Receipt Date: 20210609
  Transmission Date: 20210717
  Serious: Yes (Other)
  Sender: FDA-Public Use
  Company Number: US-SYNEX-T202101696

PATIENT
  Age: 54 Month
  Sex: Female

DRUGS (8)
  1. BOSENTAN. [Suspect]
     Active Substance: BOSENTAN
     Indication: PULMONARY HYPERTENSION
     Dosage: UNK, UP?TITRATION
     Route: 065
  2. INOMAX [Suspect]
     Active Substance: NITRIC OXIDE
     Indication: LEFT VENTRICULAR DYSFUNCTION
  3. INOMAX [Suspect]
     Active Substance: NITRIC OXIDE
     Indication: PULMONARY HYPERTENSION
     Dosage: UNK (INHALATION)
     Route: 055
  4. SILDENAFIL. [Suspect]
     Active Substance: SILDENAFIL
     Indication: DIASTOLIC DYSFUNCTION
     Dosage: UNK
     Route: 065
  5. SILDENAFIL. [Suspect]
     Active Substance: SILDENAFIL
     Indication: PULMONARY HYPERTENSION
  6. BOSENTAN. [Suspect]
     Active Substance: BOSENTAN
     Indication: DIASTOLIC DYSFUNCTION
     Dosage: UNK
     Route: 065
  7. MILRINONE [Concomitant]
     Active Substance: MILRINONE
     Indication: PULMONARY HYPERTENSION
     Dosage: UNK
     Route: 065
  8. MILRINONE [Concomitant]
     Active Substance: MILRINONE
     Indication: DIASTOLIC DYSFUNCTION

REACTIONS (3)
  - Right ventricular dysfunction [Recovering/Resolving]
  - Pulmonary hypertension [Recovering/Resolving]
  - Product use issue [Unknown]
